FAERS Safety Report 24774859 (Version 1)
Quarter: 2024Q4

REPORT INFORMATION
  Report Type: Spontaneous
  Country: FR (occurrence: FR)
  Receive Date: 20241226
  Receipt Date: 20241226
  Transmission Date: 20250115
  Serious: Yes (Hospitalization, Other)
  Sender: AUROBINDO
  Company Number: FR-AFSSAPS-TO2024002246

PATIENT
  Age: 89 Year
  Sex: Female

DRUGS (3)
  1. CLOPIDOGREL [Interacting]
     Active Substance: CLOPIDOGREL BISULFATE
     Indication: Acute coronary syndrome
     Dosage: 75 MILLIGRAM, ONCE A DAY
     Route: 048
     Dates: start: 20240924, end: 20241021
  2. KARDEGIC [Interacting]
     Active Substance: ASPIRIN DL-LYSINE
     Indication: Acute coronary syndrome
     Dosage: 1 DOSAGE FORM, ONCE A DAY
     Route: 048
     Dates: start: 20240924
  3. DEPAKOTE [Suspect]
     Active Substance: DIVALPROEX SODIUM
     Indication: Epilepsy
     Dosage: 1 DOSAGE FORM, ONCE A DAY
     Route: 048

REACTIONS (3)
  - Oesophagitis ulcerative [Not Recovered/Not Resolved]
  - Anaemia [Recovering/Resolving]
  - Melaena [Recovered/Resolved]

NARRATIVE: CASE EVENT DATE: 20241010
